FAERS Safety Report 25571646 (Version 1)
Quarter: 2025Q3

REPORT INFORMATION
  Report Type: Spontaneous
  Country: AU (occurrence: AU)
  Receive Date: 20250717
  Receipt Date: 20250717
  Transmission Date: 20251021
  Serious: Yes (Hospitalization, Other)
  Sender: BAYER HEALTHCARE PHARMACEUTICALS INC.
  Company Number: AU-BAYER-2025A092092

PATIENT
  Age: 38 Year
  Sex: Female
  Weight: 72 kg

DRUGS (3)
  1. GADOBUTROL [Suspect]
     Active Substance: GADOBUTROL
     Indication: Blood prolactin increased
     Route: 042
  2. GADOBUTROL [Suspect]
     Active Substance: GADOBUTROL
     Indication: Magnetic resonance imaging head
  3. GADOBUTROL [Suspect]
     Active Substance: GADOBUTROL
     Indication: Pituitary scan

REACTIONS (4)
  - Blindness transient [Recovered/Resolved]
  - Rash pruritic [Recovered/Resolved]
  - Hypersensitivity [Recovered/Resolved]
  - Visual impairment [Recovered/Resolved]

NARRATIVE: CASE EVENT DATE: 20250709
